FAERS Safety Report 6163909-7 (Version None)
Quarter: 2009Q2

REPORT INFORMATION
  Report Type: 
  Country: None (occurrence: None)
  Receive Date: 20090420
  Receipt Date: 20090409
  Transmission Date: 20091009
  Serious: Yes (Other)
  Sender: FDA-Public Use
  Company Number: GXKR2009CA04568

PATIENT
  Age: 41 Year
  Sex: Female

DRUGS (5)
  1. TRIAMCINOLONE [Suspect]
     Indication: ACNE CYSTIC
     Dosage: INJECTION NOS
     Dates: start: 20081201
  2. TRIAMCINOLONE [Suspect]
     Indication: INFLAMMATION
     Dosage: INJECTION NOS
     Dates: start: 20081201
  3. ACCUTANE (ISOTRETINOIN) CAPSULE [Concomitant]
  4. VALTREX [Concomitant]
  5. SPIRONOLACTONE [Concomitant]

REACTIONS (3)
  - CONNECTIVE TISSUE DISORDER [None]
  - DRUG INEFFECTIVE [None]
  - SCAR [None]
